FAERS Safety Report 4289442-5 (Version None)
Quarter: 2004Q1

REPORT INFORMATION
  Report Type: 
  Country: None (occurrence: None)
  Receive Date: 20040206
  Receipt Date: 20040127
  Transmission Date: 20041129
  Serious: Yes (Other)
  Sender: FDA-Public Use
  Company Number: US-JNJFOC-20031201181

PATIENT
  Age: 74 Year
  Sex: Female

DRUGS (1)
  1. REMICADE [Suspect]
     Indication: RHEUMATOID ARTHRITIS
     Dosage: 5 MG/KG, INTRAVENOUS
     Route: 042

REACTIONS (3)
  - DEAFNESS [None]
  - DRUG EFFECT DECREASED [None]
  - INFUSION RELATED REACTION [None]
